FAERS Safety Report 6650493-4 (Version None)
Quarter: 2010Q1

REPORT INFORMATION
  Report Type: 
  Country: None (occurrence: None)
  Receive Date: 20100325
  Receipt Date: 20100301
  Transmission Date: 20100710
  Serious: No
  Sender: FDA-Public Use
  Company Number: US-BIOGENIDEC-2010BI006928

PATIENT
  Age: 42 Year
  Sex: Male

DRUGS (1)
  1. AVONEX [Suspect]
     Indication: MULTIPLE SCLEROSIS
     Route: 030
     Dates: start: 20100227

REACTIONS (5)
  - HEADACHE [None]
  - INFLUENZA LIKE ILLNESS [None]
  - MUSCULOSKELETAL PAIN [None]
  - PAIN [None]
  - VISION BLURRED [None]
